FAERS Safety Report 17184308 (Version 4)
Quarter: 2020Q1

REPORT INFORMATION
  Report Type: Report from Study
  Country: None (occurrence: US)
  Receive Date: 20191220
  Receipt Date: 20200206
  Transmission Date: 20200409
  Serious: Yes (Hospitalization, Other)
  Sender: FDA-Public Use
  Company Number: US-ABBVIE-19K-163-3201348-00

PATIENT
  Sex: Female

DRUGS (2)
  1. HUMIRA [Suspect]
     Active Substance: ADALIMUMAB
     Route: 058
     Dates: start: 20191213
  2. HUMIRA [Suspect]
     Active Substance: ADALIMUMAB
     Indication: CROHN^S DISEASE
     Route: 058
     Dates: start: 2009, end: 2019

REACTIONS (21)
  - Bladder prolapse [Unknown]
  - Lung disorder [Unknown]
  - Breast neoplasm [Unknown]
  - Spinal operation [Unknown]
  - Diarrhoea [Recovering/Resolving]
  - Abdominal pain [Recovering/Resolving]
  - Fatigue [Recovering/Resolving]
  - Haemorrhage [Unknown]
  - Weight decreased [Recovering/Resolving]
  - Fear of injection [Unknown]
  - Lyme disease [Unknown]
  - Rectal haemorrhage [Recovered/Resolved]
  - Pyrexia [Unknown]
  - Constipation [Not Recovered/Not Resolved]
  - Nausea [Recovering/Resolving]
  - Visual impairment [Unknown]
  - Gastrointestinal infection [Unknown]
  - Eye disorder [Unknown]
  - Uterine neoplasm [Unknown]
  - Abdominal pain upper [Not Recovered/Not Resolved]
  - Vomiting [Recovering/Resolving]

NARRATIVE: CASE EVENT DATE: 2014
